FAERS Safety Report 9515231 (Version 1)
Quarter: 2013Q1

REPORT INFORMATION
  Report Type: Spontaneous
  Country: US (occurrence: None)
  Receive Date: 20130305
  Receipt Date: 20130305
  Transmission Date: 20140127
  Serious: Yes (Hospitalization)
  Sender: FDA-Public Use
  Company Number: 163-21880-12101863

PATIENT
  Age: 59 Year
  Sex: Female
  Weight: 83.92 kg

DRUGS (8)
  1. REVLIMID (LENALIDOMIDE) (CAPSULES) [Suspect]
     Indication: PLASMA CELL MYELOMA
     Dosage: 1 IN 1 D
     Route: 048
     Dates: start: 200907
  2. HYZAAR [Concomitant]
  3. OMEPRAZOLE [Concomitant]
  4. ACYCLOVIR [Concomitant]
  5. SINGULAIR [Concomitant]
  6. ASTEPRO (AZELASTINE HYDROCHLORIDE) [Concomitant]
  7. ALLEGRA [Concomitant]
  8. FLUTICASONE [Concomitant]

REACTIONS (1)
  - Pulmonary thrombosis [None]
